FAERS Safety Report 25269160 (Version 1)
Quarter: 2025Q2

REPORT INFORMATION
  Report Type: Spontaneous
  Country: US (occurrence: US)
  Receive Date: 20250505
  Receipt Date: 20250505
  Transmission Date: 20250717
  Serious: No
  Sender: PFIZER
  Company Number: US-PFIZER INC-202500092173

PATIENT
  Age: 74 Year
  Sex: Female
  Weight: 73.03 kg

DRUGS (2)
  1. FLUCONAZOLE [Suspect]
     Active Substance: FLUCONAZOLE
     Indication: Fungal infection
  2. SYNTHROID [Concomitant]
     Active Substance: LEVOTHYROXINE SODIUM
     Dosage: 150 UG, ONCE A DAY
     Route: 048

REACTIONS (2)
  - Abdominal pain [Recovering/Resolving]
  - Drug ineffective [Unknown]
